FAERS Safety Report 7213786-8 (Version None)
Quarter: 2011Q1

REPORT INFORMATION
  Report Type: 
  Country: None (occurrence: None)
  Receive Date: 20110106
  Receipt Date: 20101228
  Transmission Date: 20110831
  Serious: Yes (Other)
  Sender: FDA-Public Use
  Company Number: US-ELI_LILLY_AND_COMPANY-US201101000590

PATIENT
  Age: 17 Year
  Sex: Male

DRUGS (1)
  1. HUMATROPE [Suspect]
     Indication: GROWTH HORMONE DEFICIENCY
     Dosage: 3.2 MG, DAILY (1/D)

REACTIONS (3)
  - INJECTION SITE EXTRAVASATION [None]
  - DRUG DOSE OMISSION [None]
  - CSF SHUNT OPERATION [None]
